FAERS Safety Report 15911421 (Version 1)
Quarter: 2019Q1

REPORT INFORMATION
  Report Type: Spontaneous
  Country: US (occurrence: US)
  Receive Date: 20190204
  Receipt Date: 20190204
  Transmission Date: 20190417
  Serious: Yes (Other)
  Sender: FDA-Public Use
  Company Number: US-PFIZER INC-2019051761

PATIENT
  Age: 65 Year
  Sex: Female
  Weight: 88.44 kg

DRUGS (1)
  1. PRISTIQ EXTENDED-RELEASE [Suspect]
     Active Substance: DESVENLAFAXINE SUCCINATE
     Indication: DEPRESSION
     Dosage: 100 MG, 1X/DAY
     Route: 048
     Dates: start: 2013

REACTIONS (5)
  - Toothache [Unknown]
  - Ophthalmic herpes zoster [Unknown]
  - Herpes zoster [Not Recovered/Not Resolved]
  - Visual impairment [Unknown]
  - Nasopharyngitis [Unknown]

NARRATIVE: CASE EVENT DATE: 201901
